FAERS Safety Report 5276122-2 (Version None)
Quarter: 2007Q1

REPORT INFORMATION
  Report Type: 
  Country: None (occurrence: None)
  Receive Date: 20070326
  Receipt Date: 20060828
  Transmission Date: 20070707
  Serious: Yes (Death)
  Sender: FDA-Public Use
  Company Number: CA-JNJFOC-20060805545

PATIENT
  Sex: Male
  Weight: 98 kg

DRUGS (16)
  1. TMC114 [Suspect]
     Route: 048
  2. TMC114 [Suspect]
     Indication: HIV INFECTION
     Route: 048
  3. RITONAVIR [Suspect]
     Route: 048
  4. RITONAVIR [Suspect]
     Indication: HIV INFECTION
     Route: 048
  5. TRUVADA [Concomitant]
     Indication: HIV INFECTION
     Route: 065
  6. ENFUVIRTIDE [Concomitant]
     Indication: HIV INFECTION
     Route: 058
  7. VANCOMYCIN [Concomitant]
     Route: 065
  8. ATOVAQUONE [Concomitant]
     Route: 048
  9. FUROSEMIDE [Concomitant]
     Route: 065
  10. CLARITHROMYCIN [Concomitant]
     Route: 065
  11. ETHAMBUTOL HYDROCHLORIDE [Concomitant]
     Route: 065
  12. DIMENHYDRINATE [Concomitant]
     Route: 048
  13. DIMENHYDRINATE [Concomitant]
     Route: 042
  14. PROCHLORPERAZINE [Concomitant]
     Route: 048
  15. ACETAMINOPHEN [Concomitant]
     Route: 065
  16. MORPHINE [Concomitant]
     Route: 048

REACTIONS (1)
  - CACHEXIA [None]
